FAERS Safety Report 7575179-3 (Version None)
Quarter: 2011Q2

REPORT INFORMATION
  Report Type: 
  Country: None (occurrence: None)
  Receive Date: 20110627
  Receipt Date: 20081103
  Transmission Date: 20111010
  Serious: Yes (Death, Hospitalization)
  Sender: FDA-Public Use
  Company Number: US-BAYER-200837670NA

PATIENT
  Age: 65 Year
  Sex: Female
  Weight: 92.971 kg

DRUGS (18)
  1. SUCCINYLCHOLINE CHLORIDE [Concomitant]
     Dosage: UNK
     Route: 042
     Dates: start: 20041030, end: 20041030
  2. NEOSYNEPHRINE [Concomitant]
     Dosage: UNK
     Route: 042
     Dates: start: 20041030, end: 20041030
  3. VERSED [Concomitant]
     Dosage: UNK
     Route: 042
     Dates: start: 20041030, end: 20041030
  4. AMICAR [Concomitant]
     Dosage: 10 G, LOADING DOSE
     Route: 042
     Dates: start: 20041030, end: 20041030
  5. ENALAPRIL MALEATE [Concomitant]
     Route: 048
  6. TRASYLOL [Suspect]
     Indication: CORONARY ARTERY BYPASS
     Dosage: UNK
     Route: 042
     Dates: start: 20041030, end: 20041030
  7. LASIX [Concomitant]
     Dosage: UNK
     Route: 042
     Dates: start: 20041030, end: 20041030
  8. AMICAR [Concomitant]
     Dosage: 2 G, Q1HR
     Route: 042
     Dates: start: 20041030, end: 20041030
  9. FAMOTIDINE [Concomitant]
     Route: 048
  10. TRASYLOL [Suspect]
     Dosage: UNK
  11. SYNTHROID [Concomitant]
     Route: 048
  12. HEPARIN [Concomitant]
     Dosage: UNK
     Route: 042
     Dates: start: 20041030, end: 20041030
  13. LIDOCAINE [Concomitant]
     Dosage: UNK
     Route: 042
     Dates: start: 20041030, end: 20041030
  14. PROTAMINE SULFATE [Concomitant]
     Dosage: UNK
     Route: 042
     Dates: start: 20041030, end: 20041030
  15. LOPRESSOR [Concomitant]
     Route: 048
  16. ZOCOR [Concomitant]
     Route: 048
  17. PAVULON [Concomitant]
     Dosage: UNK
     Route: 042
     Dates: start: 20041030, end: 20041030
  18. ANCEF [Concomitant]
     Dosage: 1 G, UNK
     Route: 042
     Dates: start: 20041030, end: 20041030

REACTIONS (6)
  - PAIN [None]
  - ANXIETY [None]
  - DEATH [None]
  - UNEVALUABLE EVENT [None]
  - INJURY [None]
  - EMOTIONAL DISTRESS [None]
